FAERS Safety Report 10370900 (Version 2)
Quarter: 2014Q3

REPORT INFORMATION
  Report Type: Spontaneous
  Country: US (occurrence: US)
  Receive Date: 20140808
  Receipt Date: 20140808
  Transmission Date: 20150326
  Serious: Yes (Hospitalization)
  Sender: FDA-Public Use
  Company Number: US-SA-2014SA105007

PATIENT
  Age: 12 Year
  Sex: Female

DRUGS (1)
  1. THYMOGLOBULIN [Suspect]
     Active Substance: LAPINE T-LYMPHOCYTE IMMUNE GLOBULIN
     Indication: KIDNEY TRANSPLANT REJECTION
     Dosage: 4 DOSES
     Route: 065

REACTIONS (2)
  - Blood creatinine increased [Unknown]
  - Therapeutic response decreased [Unknown]
